FAERS Safety Report 13662673 (Version 1)
Quarter: 2017Q2

REPORT INFORMATION
  Report Type: Spontaneous
  Country: US (occurrence: US)
  Receive Date: 20170616
  Receipt Date: 20170616
  Transmission Date: 20170830
  Serious: No
  Sender: FDA-Public Use
  Company Number: None

PATIENT
  Age: 55 Year
  Sex: Male
  Weight: 78.9 kg

DRUGS (6)
  1. EPCLUSA [Suspect]
     Active Substance: SOFOSBUVIR\VELPATASVIR
     Indication: HEPATITIS C
     Dosage: 400MG/100MG QD ORAL
     Route: 048
     Dates: start: 20161026, end: 20161116
  2. ALDACTONE [Suspect]
     Active Substance: SPIRONOLACTONE
  3. PROPRANOLOL [Concomitant]
     Active Substance: PROPRANOLOL HYDROCHLORIDE
  4. MORPHINE [Concomitant]
     Active Substance: MORPHINE
  5. LASIX [Concomitant]
     Active Substance: FUROSEMIDE
  6. LACTULOSE. [Concomitant]
     Active Substance: LACTULOSE

REACTIONS (7)
  - Ileus [None]
  - Chills [None]
  - Therapy cessation [None]
  - Condition aggravated [None]
  - Pyrexia [None]
  - Hypophagia [None]
  - Oedema peripheral [None]

NARRATIVE: CASE EVENT DATE: 20161103
